FAERS Safety Report 23783938 (Version 1)
Quarter: 2024Q2

REPORT INFORMATION
  Report Type: Spontaneous
  Country: US (occurrence: None)
  Receive Date: 20240424
  Receipt Date: 20240424
  Transmission Date: 20240716
  Serious: No
  Sender: FDA-Public Use
  Company Number: None

PATIENT
  Age: 63 Year
  Sex: Male

DRUGS (5)
  1. TEZSPIRE [Suspect]
     Active Substance: TEZEPELUMAB-EKKO
     Dosage: OTHER QUANTITY : 1 PEN UN THE SKIN;?FREQUENCY : MONTHLY;?
     Route: 058
     Dates: start: 20231026
  2. BACLOFEN [Suspect]
     Active Substance: BACLOFEN
  3. LOSARTAN POT [Concomitant]
  4. SINGULAIR [Concomitant]
  5. THEIPHYLLINE [Concomitant]

REACTIONS (2)
  - Quality of life decreased [None]
  - Chest pain [None]

NARRATIVE: CASE EVENT DATE: 20240324
